FAERS Safety Report 10777360 (Version 1)
Quarter: 2015Q1

REPORT INFORMATION
  Report Type: Spontaneous
  Country: US (occurrence: None)
  Receive Date: 20150206
  Receipt Date: 20150206
  Transmission Date: 20150721
  Serious: Yes (Other)
  Sender: FDA-Public Use
  Company Number: None

PATIENT
  Age: 34 Year
  Sex: Female

DRUGS (1)
  1. CLEAN AND CLEAR PERSA-GEL 10 [Suspect]
     Active Substance: BENZOYL PEROXIDE
     Indication: ACNE
     Dosage: ONE APPLICATION

REACTIONS (5)
  - Pharyngeal oedema [None]
  - Palpitations [None]
  - Tremor [None]
  - Dysphagia [None]
  - Dizziness [None]

NARRATIVE: CASE EVENT DATE: 20150205
